FAERS Safety Report 9752501 (Version 1)
Quarter: 2013Q4

REPORT INFORMATION
  Report Type: Spontaneous
  Country: US (occurrence: None)
  Receive Date: 20131212
  Receipt Date: 20131212
  Transmission Date: 20140711
  Serious: Yes (Disabling, Other)
  Sender: FDA-Public Use
  Company Number: None

PATIENT
  Age: 81 Year
  Sex: Male
  Weight: 111.13 kg

DRUGS (18)
  1. CIPRODEX [Suspect]
     Indication: EAR INFECTION
     Dosage: 4 DROPS?2X DAY?ONCE IN EAS OF SATURDAY NIGHT
     Route: 001
     Dates: start: 20121027, end: 20121028
  2. VIT C [Concomitant]
  3. VIT D [Concomitant]
  4. BETA CAROTENE [Concomitant]
  5. FOLIC ACID [Concomitant]
  6. SELENIUM [Concomitant]
  7. GLUCOSAMINE [Concomitant]
  8. BILBERRY [Concomitant]
  9. CHOPSIYN [Concomitant]
  10. MSM [Concomitant]
  11. VIT B [Concomitant]
  12. SAW PALMETTO [Concomitant]
  13. B-COMPLES [Concomitant]
  14. COENZYNE Q-10 [Concomitant]
  15. CALCIUM [Concomitant]
  16. MAGNESIUM [Concomitant]
  17. ZINC [Concomitant]
  18. KRILL OIL [Concomitant]

REACTIONS (6)
  - Muscular weakness [None]
  - Weight decreased [None]
  - Visual acuity reduced [None]
  - Dysstasia [None]
  - Mobility decreased [None]
  - Lacrimation increased [None]
